FAERS Safety Report 4616388-2 (Version None)
Quarter: 2005Q1

REPORT INFORMATION
  Report Type: 
  Country: None (occurrence: None)
  Receive Date: 20050321
  Receipt Date: 20050307
  Transmission Date: 20050727
  Serious: Yes (Other)
  Sender: FDA-Public Use
  Company Number: 2005045100

PATIENT
  Age: 68 Year
  Sex: Female
  Weight: 65.7716 kg

DRUGS (2)
  1. ZYVOX [Suspect]
     Indication: CATHETER RELATED INFECTION
     Dosage: 1 IN 12 HR, ORAL
     Route: 048
     Dates: start: 20040220, end: 20050228
  2. LEVOTHYROXINE SODIUM [Concomitant]

REACTIONS (5)
  - AGRAPHIA [None]
  - DYSSTASIA [None]
  - GAIT DISTURBANCE [None]
  - SENSORY LOSS [None]
  - WEIGHT DECREASED [None]
